FAERS Safety Report 8585989-1 (Version None)
Quarter: 2012Q3

REPORT INFORMATION
  Report Type: 
  Country: None (occurrence: None)
  Receive Date: 20120810
  Receipt Date: 20120808
  Transmission Date: 20120928
  Serious: Yes (Death, Hospitalization)
  Sender: FDA-Public Use
  Company Number: FR-ROCHE-1006280

PATIENT
  Sex: Female
  Weight: 70 kg

DRUGS (3)
  1. CARBOPLATIN [Suspect]
     Indication: NON-SMALL CELL LUNG CANCER
     Route: 042
     Dates: start: 20110131, end: 20110404
  2. AVASTIN [Suspect]
     Indication: NON-SMALL CELL LUNG CANCER
     Route: 042
     Dates: start: 20110131, end: 20110404
  3. PEMETREXED DISODIUM [Suspect]
     Indication: NON-SMALL CELL LUNG CANCER
     Route: 042
     Dates: start: 20110523, end: 20110804

REACTIONS (3)
  - MUSCULOSKELETAL CHEST PAIN [None]
  - BRONCHIAL OBSTRUCTION [None]
  - RESPIRATORY DISTRESS [None]
